FAERS Safety Report 5368436-2 (Version None)
Quarter: 2007Q2

REPORT INFORMATION
  Report Type: 
  Country: None (occurrence: None)
  Receive Date: 20070621
  Receipt Date: 20070601
  Transmission Date: 20071010
  Serious: Yes (Hospitalization)
  Sender: FDA-Public Use
  Company Number: 200711975

PATIENT
  Age: 3 Day
  Sex: Female

DRUGS (1)
  1. RHOPHYLAC (IMMUNOGLOBULIN HUMAN ANTI-RH) (CSL BEHRING) [Suspect]
     Indication: MEDICATION ERROR
     Dosage: 100 UG DAILY IV
     Route: 042
     Dates: start: 20070503, end: 20070503

REACTIONS (5)
  - COOMBS TEST POSITIVE [None]
  - HAEMOLYSIS [None]
  - JAUNDICE [None]
  - MEDICATION ERROR [None]
  - WRONG DRUG ADMINISTERED [None]
